FAERS Safety Report 13020511 (Version 3)
Quarter: 2017Q1

REPORT INFORMATION
  Report Type: Spontaneous
  Country: US (occurrence: US)
  Receive Date: 20161212
  Receipt Date: 20170201
  Transmission Date: 20170428
  Serious: No
  Sender: FDA-Public Use
  Company Number: US-ACTELION-A-NJ2016-146767

PATIENT
  Age: 81 Year
  Sex: Male

DRUGS (1)
  1. VALCHLOR [Suspect]
     Active Substance: MECHLORETHAMINE
     Indication: MYCOSIS FUNGOIDES
     Dosage: UNK
     Route: 061
     Dates: start: 20161115

REACTIONS (5)
  - Wound [Unknown]
  - Pain of skin [Unknown]
  - Wound secretion [Unknown]
  - Erythema [Unknown]
  - Skin exfoliation [Unknown]
